FAERS Safety Report 14182619 (Version 2)
Quarter: 2018Q2

REPORT INFORMATION
  Report Type: Report from Study
  Country: US (occurrence: US)
  Receive Date: 20171113
  Receipt Date: 20180430
  Transmission Date: 20180711
  Serious: Yes (Other)
  Sender: FDA-Public Use
  Company Number: US-ROCHE-2023678

PATIENT
  Sex: Female
  Weight: 56.75 kg

DRUGS (13)
  1. VENLAFAXINE HCL [Concomitant]
     Active Substance: VENLAFAXINE HYDROCHLORIDE
     Route: 065
  2. LIDOCAINE. [Concomitant]
     Active Substance: LIDOCAINE
     Route: 065
  3. MEDROXYPROGESTERONE [Concomitant]
     Active Substance: MEDROXYPROGESTERONE
  4. MINIVELLE [Concomitant]
     Active Substance: ESTRADIOL
  5. OCEAN SALINE NASAL SPRAY [Concomitant]
     Active Substance: SODIUM CHLORIDE
     Route: 045
  6. LEVOTHYROXINE. [Concomitant]
     Active Substance: LEVOTHYROXINE
     Indication: HYPOTHYROIDISM
     Route: 065
  7. DESMOPRESSIN [Concomitant]
     Active Substance: DESMOPRESSIN
     Dosage: DOSE: 2 AND 1/2 TABLETS TWICE A DAY
     Route: 048
  8. ESTRADIOL. [Concomitant]
     Active Substance: ESTRADIOL
     Dosage: 0.075MG/24HR PATCH
     Route: 050
  9. IBUPROFEN. [Concomitant]
     Active Substance: IBUPROFEN
     Route: 048
  10. PROVERA [Concomitant]
     Active Substance: MEDROXYPROGESTERONE ACETATE
     Route: 048
  11. HYDROCORTISONE. [Concomitant]
     Active Substance: HYDROCORTISONE
  12. NUTROPIN AQ [Suspect]
     Active Substance: SOMATROPIN
     Route: 058
  13. NUTROPIN AQ [Suspect]
     Active Substance: SOMATROPIN
     Indication: HYPOPITUITARISM
     Route: 058

REACTIONS (15)
  - Menorrhagia [Unknown]
  - Fatigue [Unknown]
  - Alopecia [Unknown]
  - Anxiety [Unknown]
  - Dyspnoea [Unknown]
  - Memory impairment [Unknown]
  - Headache [Unknown]
  - Fractured coccyx [Unknown]
  - Feeling jittery [Unknown]
  - Stress [Unknown]
  - Tonsillar disorder [Unknown]
  - Palpitations [Unknown]
  - Menstruation irregular [Unknown]
  - Weight increased [Unknown]
  - Dysuria [Unknown]
